FAERS Safety Report 7068052-0 (Version None)
Quarter: 2010Q4

REPORT INFORMATION
  Report Type: 
  Country: None (occurrence: None)
  Receive Date: 20101020
  Receipt Date: 20101019
  Transmission Date: 20110411
  Serious: Yes (Hospitalization)
  Sender: FDA-Public Use
  Company Number: GRT 2010-15472

PATIENT
  Age: 72 Year
  Sex: Female
  Weight: 72 kg

DRUGS (1)
  1. LIDOCAINE [Suspect]
     Indication: NEURALGIA
     Dates: start: 20100925, end: 20101006

REACTIONS (2)
  - FALL [None]
  - LOWER LIMB FRACTURE [None]
